FAERS Safety Report 5731899-4 (Version None)
Quarter: 2008Q2

REPORT INFORMATION
  Report Type: 
  Country: None (occurrence: None)
  Receive Date: 20080508
  Receipt Date: 20080423
  Transmission Date: 20081010
  Serious: Yes (Hospitalization)
  Sender: FDA-Public Use
  Company Number: KR-ROCHE-555262

PATIENT
  Sex: Male
  Weight: 62 kg

DRUGS (6)
  1. BLINDED BEVACIZUMAB [Suspect]
     Indication: GASTRIC CANCER
     Dosage: GIVEN ON DAY ONE EVERY THREE WEEKS. DOSAGE FORM REPORTED AS INFUSION.
     Route: 042
     Dates: start: 20080312, end: 20080403
  2. XELODA [Suspect]
     Indication: GASTRIC CANCER
     Dosage: GIVEN TWICE DAILY FROM DAY 1 TO 14 EVERY 3 WEEKS.
     Route: 048
     Dates: start: 20080312, end: 20080403
  3. CISPLATIN [Suspect]
     Indication: GASTRIC CANCER
     Dosage: GIVEN ON DAY 1 EVERY 3 WEEKS.DOSAGE FORM REPORTED AS INFUSION.DOSING AMOUNT ALSO REPORTED AS 80MG/M2
     Route: 042
     Dates: start: 20080312, end: 20080403
  4. MYPOL [Concomitant]
     Dates: start: 20080311, end: 20080403
  5. MYPOL [Concomitant]
     Dates: start: 20080311, end: 20080403
  6. MYPOL [Concomitant]
     Dates: start: 20080311, end: 20080403

REACTIONS (1)
  - RENAL FAILURE [None]
